FAERS Safety Report 4812304-9 (Version None)
Quarter: 2005Q4

REPORT INFORMATION
  Report Type: 
  Country: None (occurrence: None)
  Receive Date: 20051028
  Receipt Date: 20050110
  Transmission Date: 20060501
  Serious: Yes (Hospitalization)
  Sender: FDA-Public Use
  Company Number: 04P-163-0282803-00

PATIENT
  Age: 65 Year
  Sex: Male

DRUGS (12)
  1. ADVAIR DISKUS 100/50 [Suspect]
     Indication: LUNG DISORDER
     Route: 055
     Dates: start: 20041204, end: 20041205
  2. HUMIRA [Suspect]
     Indication: RHEUMATOID ARTHRITIS
     Dosage: 40MG EVERY TWO WEEKS
     Route: 058
     Dates: start: 20030101, end: 20041205
  3. ASPIRIN [Concomitant]
     Indication: RHEUMATOID ARTHRITIS
     Route: 048
  4. PREDNISONE [Concomitant]
     Indication: RHEUMATOID ARTHRITIS
     Route: 048
  5. OXYGEN [Concomitant]
     Indication: LUNG DISORDER
     Dates: start: 20040920
  6. ISOSORBIDE [Concomitant]
     Dosage: 60MG TWICE PER DAY
     Route: 048
  7. METOPROLOL [Concomitant]
     Dosage: 50MG TWICE PER DAY
     Route: 048
  8. GLYCERYL TRINITRATE [Concomitant]
     Route: 060
  9. FUROSEMIDE [Concomitant]
     Dosage: 20MG PER DAY
  10. POTASSIUM CHLORIDE [Concomitant]
  11. ROSIGLITAZONE [Concomitant]
     Dosage: 4MG THREE TIMES PER DAY
     Dates: start: 19990101
  12. SERTRALINE HCL [Concomitant]
     Dosage: 50MG PER DAY
     Dates: start: 19990101

REACTIONS (2)
  - LUNG INFILTRATION [None]
  - PNEUMONIA [None]
